FAERS Safety Report 14506045 (Version 2)
Quarter: 2018Q1

REPORT INFORMATION
  Report Type: Spontaneous
  Country: LV (occurrence: LV)
  Receive Date: 20180208
  Receipt Date: 20180315
  Transmission Date: 20180509
  Serious: Yes (Hospitalization)
  Sender: FDA-Public Use
  Company Number: LV-MYLANLABS-2018M1008184

PATIENT
  Age: 66 Year
  Sex: Male

DRUGS (2)
  1. KLACID 500 MG COATED TABLETS [Suspect]
     Active Substance: CLARITHROMYCIN
     Indication: PYREXIA
  2. KLACID 500 MG COATED TABLETS [Suspect]
     Active Substance: CLARITHROMYCIN
     Indication: COUGH
     Dosage: 500 MG, BID
     Dates: start: 201801, end: 201801

REACTIONS (2)
  - Drug ineffective [Not Recovered/Not Resolved]
  - Pneumonia [Not Recovered/Not Resolved]
